FAERS Safety Report 25252435 (Version 2)
Quarter: 2025Q2

REPORT INFORMATION
  Report Type: Report from Study
  Country: CA (occurrence: CA)
  Receive Date: 20250429
  Receipt Date: 20250508
  Transmission Date: 20250716
  Serious: Yes (Other)
  Sender: CSL BEHRING
  Company Number: CA-BEH-2025199023

PATIENT
  Age: 82 Year
  Sex: Female
  Weight: 77.6 kg

DRUGS (24)
  1. HIZENTRA [Suspect]
     Active Substance: HUMAN IMMUNOGLOBULIN G
     Indication: Secondary immunodeficiency
     Dosage: 8 G, QOW
     Route: 058
     Dates: start: 20250227
  2. HIZENTRA [Suspect]
     Active Substance: HUMAN IMMUNOGLOBULIN G
     Dosage: 8 G, QOW
     Route: 058
     Dates: start: 20250227
  3. HIZENTRA [Suspect]
     Active Substance: HUMAN IMMUNOGLOBULIN G
     Dosage: UNK, QOW
     Route: 058
     Dates: start: 20250325
  4. HIZENTRA [Suspect]
     Active Substance: HUMAN IMMUNOGLOBULIN G
     Route: 065
     Dates: start: 20250422
  5. METFORMIN HYDROCHLORIDE [Concomitant]
     Active Substance: METFORMIN HYDROCHLORIDE
  6. APIXABAN [Concomitant]
     Active Substance: APIXABAN
  7. MESTINON [Concomitant]
     Active Substance: PYRIDOSTIGMINE BROMIDE
  8. LATANOPROST [Concomitant]
     Active Substance: LATANOPROST
  9. PANTOPRAZOLE SODIUM [Concomitant]
     Active Substance: PANTOPRAZOLE SODIUM
  10. CHOLECALCIFEROL [Concomitant]
     Active Substance: CHOLECALCIFEROL
  11. CALCIUM [Concomitant]
     Active Substance: CALCIUM
  12. TELMISARTAN [Concomitant]
     Active Substance: TELMISARTAN
  13. ATIVAN [Concomitant]
     Active Substance: LORAZEPAM
  14. SPIRIVA [Concomitant]
     Active Substance: TIOTROPIUM BROMIDE MONOHYDRATE
  15. ARIPIPRAZOLE [Concomitant]
     Active Substance: ARIPIPRAZOLE
  16. CITALOPRAM [Concomitant]
     Active Substance: CITALOPRAM
  17. HYDROCHLOROTHIAZIDE [Concomitant]
     Active Substance: HYDROCHLOROTHIAZIDE
  18. IMURAN [Concomitant]
     Active Substance: AZATHIOPRINE
  19. ATORVASTATIN [Concomitant]
     Active Substance: ATORVASTATIN
  20. B12 [Concomitant]
  21. PROLIA [Concomitant]
     Active Substance: DENOSUMAB
  22. COLACE [Concomitant]
     Active Substance: DOCUSATE SODIUM
  23. BRICANYL [Concomitant]
     Active Substance: TERBUTALINE SULFATE
  24. PREDNISONE [Concomitant]
     Active Substance: PREDNISONE

REACTIONS (5)
  - Choking [Unknown]
  - Dyspnoea [Unknown]
  - Fatigue [Unknown]
  - Dyspnoea [Unknown]
  - Asthenia [Unknown]

NARRATIVE: CASE EVENT DATE: 20250227
